FAERS Safety Report 9101261 (Version 1)
Quarter: 2013Q1

REPORT INFORMATION
  Report Type: Report from Study
  Country: US (occurrence: US)
  Receive Date: 20130218
  Receipt Date: 20130218
  Transmission Date: 20140127
  Serious: Yes (Other)
  Sender: FDA-Public Use
  Company Number: US-ROCHE-1040261

PATIENT
  Sex: 0

DRUGS (5)
  1. BEVACIZUMAB [Suspect]
     Indication: TRANSITIONAL CELL CARCINOMA
     Route: 042
  2. BEVACIZUMAB [Suspect]
     Dosage: ON DAY 1 OF EACH 21-DAY CYCLE
     Route: 042
  3. GEMCITABINE [Suspect]
     Indication: TRANSITIONAL CELL CARCINOMA
     Dosage: ON DAYS 1 AND 8
     Route: 065
  4. CARBOPLATIN [Suspect]
     Indication: TRANSITIONAL CELL CARCINOMA
     Dosage: 5 AUC ON DAY 1 EVERY 21 DAYS
     Route: 042
  5. CARBOPLATIN [Suspect]
     Dosage: 4.5 AUC
     Route: 042

REACTIONS (24)
  - Embolism [Unknown]
  - Infection [Unknown]
  - Fatigue [Unknown]
  - Liver function test abnormal [Unknown]
  - Haemorrhage [Unknown]
  - Constipation [Unknown]
  - Nausea [Unknown]
  - Pain [Unknown]
  - Renal impairment [Unknown]
  - Neuropathy peripheral [Unknown]
  - Weight decreased [Unknown]
  - Hypertension [Unknown]
  - Duodenal ulcer [Unknown]
  - Myocardial ischaemia [Unknown]
  - Pneumonitis [Unknown]
  - Proteinuria [Unknown]
  - Amylase increased [Unknown]
  - Lipase increased [Unknown]
  - Febrile neutropenia [Unknown]
  - Neutropenia [Unknown]
  - Leukopenia [Unknown]
  - Thrombocytopenia [Unknown]
  - Anaemia [Unknown]
  - Lymphopenia [Unknown]
